FAERS Safety Report 10023476 (Version 1)
Quarter: 2014Q1

REPORT INFORMATION
  Report Type: Spontaneous
  Country: US (occurrence: None)
  Receive Date: 20140319
  Receipt Date: 20140319
  Transmission Date: 20141002
  Serious: Yes (Other)
  Sender: FDA-Public Use
  Company Number: None

PATIENT
  Age: 66 Year
  Sex: Female
  Weight: 97.07 kg

DRUGS (1)
  1. FUROSEMIDE [Suspect]
     Indication: FLUID RETENTION
     Dosage: 1 PILL, ONCE DAILY, TAKEN BY MOUTH
     Route: 048
     Dates: start: 20140304, end: 20140311

REACTIONS (2)
  - Weight increased [None]
  - Dyspnoea [None]
